FAERS Safety Report 9964388 (Version 1)
Quarter: 2014Q1

REPORT INFORMATION
  Report Type: Spontaneous
  Country: GB (occurrence: GB)
  Receive Date: 20140305
  Receipt Date: 20140305
  Transmission Date: 20141002
  Serious: Yes (Other)
  Sender: FDA-Public Use
  Company Number: GB-GLAXOSMITHKLINE-B0973568A

PATIENT
  Age: 32 Year
  Sex: Male

DRUGS (3)
  1. CLENIL MODULITE [Suspect]
     Indication: PRODUCT USED FOR UNKNOWN INDICATION
     Route: 065
     Dates: start: 20140116
  2. FLUTICASONE [Concomitant]
     Dates: start: 20140207
  3. SALBUTAMOL [Concomitant]
     Dates: start: 20140116

REACTIONS (1)
  - Chest discomfort [Recovering/Resolving]
